FAERS Safety Report 20523336 (Version 6)
Quarter: 2022Q2

REPORT INFORMATION
  Report Type: Spontaneous
  Country: PL (occurrence: PL)
  Receive Date: 20220227
  Receipt Date: 20220531
  Transmission Date: 20220721
  Serious: Yes (Other)
  Sender: FDA-Public Use
  Company Number: PL-BAUSCH-BL-2022-004356

PATIENT
  Age: 40 Year
  Sex: Female

DRUGS (19)
  1. ATORVASTATIN [Interacting]
     Active Substance: ATORVASTATIN
     Indication: Dyslipidaemia
     Dosage: 20 MILLIGRAM, ONCE A DAY
     Route: 048
  2. FLUCONAZOLE [Interacting]
     Active Substance: FLUCONAZOLE
     Indication: Vaginal discharge
     Dosage: 200 MILLIGRAM, ONCE A DAY
     Route: 048
  3. FLUCONAZOLE [Interacting]
     Active Substance: FLUCONAZOLE
     Indication: Dysuria
  4. FLUCONAZOLE [Interacting]
     Active Substance: FLUCONAZOLE
     Indication: Micturition disorder
  5. PAROXETINE [Suspect]
     Active Substance: PAROXETINE
     Indication: Depression
     Dosage: 20 MILLIGRAM, ONCE A DAY
     Route: 065
  6. PAROXETINE [Suspect]
     Active Substance: PAROXETINE
     Dosage: 40 MILLIGRAM, ONCE A DAY(INITIALLY AT A DOSE OF 20 MG/DAY, THEN 40 MG/DAY )
     Route: 048
  7. QUETIAPINE [Interacting]
     Active Substance: QUETIAPINE
     Indication: Affective disorder
     Dosage: 200 MILLIGRAM, ONCE A DAY (150 MG A DAY, THEN 200 MG BEFORE SLEEP)
     Route: 048
  8. QUETIAPINE [Interacting]
     Active Substance: QUETIAPINE
     Indication: Depression
     Dosage: 150 MILLIGRAM, ONCE A DAY (THEN 200 MG BEFORE SLEEP)
     Route: 065
  9. QUETIAPINE [Interacting]
     Active Substance: QUETIAPINE
     Dosage: 50 MILLIGRAM, ONCE A DAY(BED TIME)
     Route: 065
  10. BIOTIN [Interacting]
     Active Substance: BIOTIN
     Indication: Alopecia
     Dosage: 20 MILLIGRAM, ONCE A DAY
     Route: 048
  11. CRANBERRY [Interacting]
     Active Substance: CRANBERRY
     Indication: Blood uric acid increased
     Dosage: 300 MILLIGRAM
     Route: 065
  12. CRANBERRY [Interacting]
     Active Substance: CRANBERRY
     Indication: Dysuria
  13. CRANBERRY [Interacting]
     Active Substance: CRANBERRY
     Indication: Vaginal discharge
  14. CRANBERRY [Interacting]
     Active Substance: CRANBERRY
     Indication: Micturition disorder
  15. ETHAMSYLATE [Suspect]
     Active Substance: ETHAMSYLATE
     Indication: Epistaxis
     Dosage: UNK
     Route: 065
  16. LEVOTHYROXINE [Concomitant]
     Active Substance: LEVOTHYROXINE
     Indication: Hypothyroidism
     Dosage: 100 MICROGRAM, ONCE A DAY
     Route: 065
  17. NATAMYCIN [Concomitant]
     Active Substance: NATAMYCIN
     Indication: Product used for unknown indication
     Dosage: UNK
     Route: 065
  18. PREGABALIN [Concomitant]
     Active Substance: PREGABALIN
     Indication: Depression
     Dosage: UNK
     Route: 065
  19. ROSUVASTATIN [Concomitant]
     Active Substance: ROSUVASTATIN
     Indication: Dyslipidaemia
     Dosage: UNK
     Route: 065

REACTIONS (22)
  - Thrombocytopenia [Recovered/Resolved]
  - Leukopenia [Recovered/Resolved]
  - Asthenia [Recovered/Resolved]
  - Hypothyroidism [Recovered/Resolved]
  - Disturbance in attention [Recovered/Resolved]
  - Somnolence [Recovered/Resolved]
  - Dysuria [Recovered/Resolved]
  - Anxiety [Recovered/Resolved]
  - Fatigue [Recovered/Resolved]
  - Vaginal discharge [Unknown]
  - Drug level increased [Recovering/Resolving]
  - Potentiating drug interaction [Recovered/Resolved]
  - Epistaxis [Recovered/Resolved]
  - Drug interaction [Recovered/Resolved]
  - Memory impairment [Recovered/Resolved]
  - Thyroid disorder [Recovering/Resolving]
  - Platelet count decreased [Recovering/Resolving]
  - Cognitive disorder [Unknown]
  - Procedural complication [Unknown]
  - Blood disorder [Unknown]
  - Treatment failure [Unknown]
  - Drug ineffective [Unknown]
